FAERS Safety Report 5415970-2 (Version None)
Quarter: 2007Q3

REPORT INFORMATION
  Report Type: 
  Country: None (occurrence: None)
  Receive Date: 20070815
  Receipt Date: 20070803
  Transmission Date: 20080115
  Serious: Yes (Other)
  Sender: FDA-Public Use
  Company Number: US-PFIZER INC-2007065845

PATIENT
  Sex: Female

DRUGS (4)
  1. CHANTIX [Suspect]
  2. BENADRYL [Suspect]
  3. ZANTAC 150 [Suspect]
  4. NEXIUM [Suspect]

REACTIONS (3)
  - CHEST PAIN [None]
  - PNEUMONIA [None]
  - PRURITUS [None]
